FAERS Safety Report 7413351-3 (Version None)
Quarter: 2011Q2

REPORT INFORMATION
  Report Type: 
  Country: None (occurrence: None)
  Receive Date: 20110413
  Receipt Date: 20100625
  Transmission Date: 20111010
  Serious: No
  Sender: FDA-Public Use
  Company Number: US-ASTRAZENECA-2010SE24869

PATIENT
  Age: 74 Year

DRUGS (3)
  1. PULMICORT [Suspect]
     Route: 055
  2. ON OXYGEN [Concomitant]
  3. ATENOLOL [Suspect]
     Route: 065

REACTIONS (2)
  - EPISTAXIS [None]
  - DRY MOUTH [None]
